FAERS Safety Report 14404267 (Version 3)
Quarter: 2018Q2

REPORT INFORMATION
  Report Type: Spontaneous
  Country: US (occurrence: US)
  Receive Date: 20180117
  Receipt Date: 20180503
  Transmission Date: 20180711
  Serious: Yes (Hospitalization, Other)
  Sender: FDA-Public Use
  Company Number: US-DSJP-DSU-2017-148727

PATIENT

DRUGS (2)
  1. AZOR [Suspect]
     Active Substance: AMLODIPINE BESYLATE\OLMESARTAN MEDOXOMIL
     Indication: HYPERTENSION
     Dosage: 5-20 MG, QD
     Route: 048
     Dates: end: 20150528
  2. BENICAR [Suspect]
     Active Substance: OLMESARTAN MEDOXOMIL
     Indication: PRODUCT USED FOR UNKNOWN INDICATION
     Dosage: 20 MG, 0.5 TABLET, QD
     Route: 048
     Dates: start: 20101202

REACTIONS (9)
  - Diverticulum [Recovering/Resolving]
  - Dehydration [Unknown]
  - Weight decreased [Recovered/Resolved]
  - Peptic ulcer [Unknown]
  - Cholecystitis chronic [Recovered/Resolved]
  - Hiatus hernia [Unknown]
  - Colitis [Recovered/Resolved]
  - Constipation [Not Recovered/Not Resolved]
  - Drug administration error [Unknown]

NARRATIVE: CASE EVENT DATE: 20060818
